FAERS Safety Report 8309065-8 (Version None)
Quarter: 2012Q2

REPORT INFORMATION
  Report Type: 
  Country: None (occurrence: None)
  Receive Date: 20120424
  Receipt Date: 20120418
  Transmission Date: 20120825
  Serious: Yes (Other)
  Sender: FDA-Public Use
  Company Number: FI-ROCHE-744920

PATIENT
  Age: 35 Year
  Sex: Male

DRUGS (2)
  1. PREDNISOLONE [Concomitant]
     Indication: JUVENILE ARTHRITIS
  2. ACTEMRA [Suspect]
     Indication: JUVENILE ARTHRITIS
     Route: 065

REACTIONS (3)
  - SKIN ULCER [None]
  - WHITE BLOOD CELL COUNT INCREASED [None]
  - INTESTINAL FISTULA [None]
